FAERS Safety Report 18898584 (Version 1)
Quarter: 2021Q1

REPORT INFORMATION
  Report Type: Report from Study
  Country: CA (occurrence: CA)
  Receive Date: 20210216
  Receipt Date: 20210216
  Transmission Date: 20210420
  Serious: No
  Sender: FDA-Public Use
  Company Number: PHHY2014CA062210

PATIENT
  Age: 61 Year
  Sex: Female

DRUGS (6)
  1. SANDOSTATIN LAR DEPOT [Suspect]
     Active Substance: OCTREOTIDE ACETATE
     Dosage: 20 MG, QMO
     Route: 030
     Dates: start: 2014
  2. SANDOSTATIN LAR DEPOT [Suspect]
     Active Substance: OCTREOTIDE ACETATE
  3. SANDOSTATIN [Suspect]
     Active Substance: OCTREOTIDE ACETATE
  4. SANDOSTATIN [Suspect]
     Active Substance: OCTREOTIDE ACETATE
  5. SANDOSTATIN LAR DEPOT [Suspect]
     Active Substance: OCTREOTIDE ACETATE
     Indication: ACROMEGALY
     Dosage: 20 MG, QMO
     Route: 030
     Dates: start: 20140419, end: 2014
  6. SANDOSTATIN [Suspect]
     Active Substance: OCTREOTIDE ACETATE
     Indication: ACROMEGALY
     Dosage: TID (FOR 2 WEEKS)
     Route: 058
     Dates: start: 20140404, end: 201404

REACTIONS (18)
  - Fatigue [Unknown]
  - Heart rate decreased [Unknown]
  - Rash [Recovered/Resolved]
  - Concussion [Recovering/Resolving]
  - Migraine [Unknown]
  - Cystitis [Unknown]
  - Bronchitis [Unknown]
  - Post-traumatic neck syndrome [Recovering/Resolving]
  - Fall [Unknown]
  - Weight increased [Unknown]
  - Stress [Unknown]
  - Onychoclasis [Unknown]
  - Alopecia [Not Recovered/Not Resolved]
  - Blood pressure increased [Unknown]
  - Headache [Unknown]
  - Pain [Unknown]
  - Ligament sprain [Unknown]
  - Feeling abnormal [Unknown]

NARRATIVE: CASE EVENT DATE: 201404
